FAERS Safety Report 21946896 (Version 3)
Quarter: 2023Q2

REPORT INFORMATION
  Report Type: Spontaneous
  Country: US (occurrence: US)
  Receive Date: 20230202
  Receipt Date: 20230428
  Transmission Date: 20230722
  Serious: Yes (Other)
  Sender: FDA-Public Use
  Company Number: US-BRISTOL-MYERS SQUIBB COMPANY-2023-015060

PATIENT
  Age: 71 Year
  Sex: Male

DRUGS (1)
  1. POMALYST [Suspect]
     Active Substance: POMALIDOMIDE
     Indication: Plasma cell myeloma
     Dosage: 21 DAYS FOLLOWED BY 7 DAYS OFF
     Route: 048
     Dates: start: 20221014

REACTIONS (3)
  - Tooth disorder [Unknown]
  - Retinal disorder [Recovered/Resolved]
  - Seasonal allergy [Not Recovered/Not Resolved]
